FAERS Safety Report 21652853 (Version 1)
Quarter: 2022Q4

REPORT INFORMATION
  Report Type: Spontaneous
  Country: US (occurrence: None)
  Receive Date: 20221125
  Receipt Date: 20221125
  Transmission Date: 20230113
  Serious: Yes (Death)
  Sender: FDA-Public Use
  Company Number: None

PATIENT
  Sex: Male

DRUGS (9)
  1. COPAXONE [Suspect]
     Active Substance: GLATIRAMER ACETATE
     Indication: Multiple sclerosis
     Dosage: 40 MG/ML SUBCUTANNEOUS??I INJECT 1 SYRINGE UNDER THE SKIN (SUBCUTANEOUS INJECTION) THREE TIMES PER W
     Route: 058
     Dates: start: 20150618
  2. BIOTIN [Concomitant]
     Active Substance: BIOTIN
  3. CALCIUM [Concomitant]
     Active Substance: CALCIUM
  4. DESMOPRESSIN [Concomitant]
     Active Substance: DESMOPRESSIN
  5. FISH OIL [Concomitant]
     Active Substance: FISH OIL
  6. FOSAMAX [Concomitant]
     Active Substance: ALENDRONATE SODIUM
  7. KEFLEX [Concomitant]
     Active Substance: CEPHALEXIN
  8. MAGNESIUM [Concomitant]
     Active Substance: MAGNESIUM
  9. VITAMIN D3 [Concomitant]
     Active Substance: CHOLECALCIFEROL

REACTIONS (1)
  - Death [None]
